FAERS Safety Report 26043233 (Version 1)
Quarter: 2025Q4

REPORT INFORMATION
  Report Type: Spontaneous
  Country: US (occurrence: US)
  Receive Date: 20251113
  Receipt Date: 20251113
  Transmission Date: 20260117
  Serious: No
  Sender: ELI LILLY AND COMPANY
  Company Number: US-ELI_LILLY_AND_COMPANY-US202511011606

PATIENT
  Age: 77 Year
  Sex: Female

DRUGS (14)
  1. CYMBALTA [Suspect]
     Active Substance: DULOXETINE HYDROCHLORIDE
     Indication: Product used for unknown indication
     Dosage: UNK, UNKNOWN
     Route: 065
  2. TREPROSTINIL [Suspect]
     Active Substance: TREPROSTINIL
     Indication: Pulmonary arterial hypertension
     Dosage: 48 UG, QID
     Route: 055
     Dates: start: 2025, end: 2025
  3. TREPROSTINIL [Suspect]
     Active Substance: TREPROSTINIL
     Dosage: 64 UG, QID
     Route: 055
     Dates: start: 2025
  4. TREPROSTINIL [Suspect]
     Active Substance: TREPROSTINIL
     Dosage: 80 UG, QID
     Route: 055
     Dates: start: 20250917
  5. TREPROSTINIL [Suspect]
     Active Substance: TREPROSTINIL
     Dosage: 128 UG, QID
     Route: 055
     Dates: start: 2025, end: 2025
  6. TREPROSTINIL [Suspect]
     Active Substance: TREPROSTINIL
     Dosage: 176 UG (128 UG + 48 UG), QID
     Route: 055
     Dates: start: 2025
  7. TREPROSTINIL [Suspect]
     Active Substance: TREPROSTINIL
     Dosage: UNK UNK, UNKNOWN
     Route: 055
     Dates: start: 202508
  8. TYVASO DPI [Suspect]
     Active Substance: TREPROSTINIL
     Indication: Pulmonary arterial hypertension
     Dosage: 16 UG, QID
     Route: 055
     Dates: start: 202508
  9. TYVASO DPI [Suspect]
     Active Substance: TREPROSTINIL
     Dosage: 32 UG, QID
     Route: 055
  10. TYVASO DPI [Suspect]
     Active Substance: TREPROSTINIL
     Dosage: 48 UG, QID
     Route: 055
  11. TYVASO DPI [Suspect]
     Active Substance: TREPROSTINIL
     Dosage: 64 UG, QID
     Route: 055
  12. TYVASO DPI [Suspect]
     Active Substance: TREPROSTINIL
     Dosage: 80 UG, QID
     Route: 055
  13. TYVASO DPI [Suspect]
     Active Substance: TREPROSTINIL
     Dosage: 128 UG, QID
     Route: 055
  14. TYVASO DPI [Suspect]
     Active Substance: TREPROSTINIL
     Dosage: 176 UG (128 UG + 48 UG), QID
     Route: 055

REACTIONS (4)
  - Mobility decreased [Unknown]
  - Fatigue [Unknown]
  - Feeling abnormal [Unknown]
  - Malaise [Unknown]

NARRATIVE: CASE EVENT DATE: 20250101
